FAERS Safety Report 20612325 (Version 1)
Quarter: 2022Q1

REPORT INFORMATION
  Report Type: Spontaneous
  Country: CO (occurrence: CO)
  Receive Date: 20220318
  Receipt Date: 20220318
  Transmission Date: 20220423
  Serious: Yes (Other)
  Sender: FDA-Public Use
  Company Number: CO-AMGEN-COLSP2022043116

PATIENT
  Age: 72 Year
  Sex: Female
  Weight: 60 kg

DRUGS (10)
  1. MVASI [Suspect]
     Active Substance: BEVACIZUMAB-AWWB
     Indication: Adenocarcinoma of colon
     Dosage: 100 MILLIGRAM, QD
     Route: 042
     Dates: start: 20220215
  2. LEUCOVORIN CALCIUM [Concomitant]
     Active Substance: LEUCOVORIN CALCIUM
     Indication: Adenocarcinoma of colon
     Dosage: 10 MILLIGRAM PER MILLITRE, QD
     Route: 042
     Dates: start: 20220215
  3. DEXAMETHASONE PHOSPHATE [Concomitant]
     Active Substance: DEXAMETHASONE PHOSPHATE
     Indication: Adenocarcinoma of colon
     Dosage: 4 MILLIGRAM PER MILLILITRE, QD
     Route: 042
     Dates: start: 20220215
  4. FLUOROURACIL [Concomitant]
     Active Substance: FLUOROURACIL
     Indication: Adenocarcinoma of colon
     Dosage: 500 MILLIGRAM PER 10 MILLILITRE, QD
     Route: 042
     Dates: start: 20220215
  5. FOSAPREPITANT [Concomitant]
     Active Substance: FOSAPREPITANT
     Indication: Adenocarcinoma of colon
     Dosage: 150 MILLIGRAM PER 10 MILLILTRE, QD
     Route: 042
     Dates: start: 20220215
  6. IRINOTECAN [Concomitant]
     Active Substance: IRINOTECAN
     Indication: Adenocarcinoma of colon
     Dosage: 100 MILLIGRAM PER 5 MILLILTRE, QD
     Route: 042
     Dates: start: 20220215
  7. PALONOSETRON [Concomitant]
     Active Substance: PALONOSETRON
     Indication: Adenocarcinoma of colon
     Dosage: 50 MICROGRAM PER MILLILTRE, QD
     Route: 042
     Dates: start: 20220215
  8. ATROPINE SULFATE [Concomitant]
     Active Substance: ATROPINE SULFATE
     Indication: Adenocarcinoma of colon
     Dosage: 1 MILLIGRAM PER MILLILITRE, EVERY 24 HOURS
     Route: 030
     Dates: start: 20220215
  9. PEGFILGRASTIM [Concomitant]
     Active Substance: PEGFILGRASTIM
     Indication: Adenocarcinoma of colon
     Dosage: 6 MILLIGRAM PER 0.6 ML EVERY 24 HOURS
     Route: 058
     Dates: start: 20220215
  10. FLUOROURACIL\IRINOTECAN\LEUCOVORIN [Concomitant]
     Active Substance: FLUOROURACIL\IRINOTECAN\LEUCOVORIN
     Indication: Adenocarcinoma of colon

REACTIONS (4)
  - Gastrointestinal toxicity [Not Recovered/Not Resolved]
  - Abdominal pain [Not Recovered/Not Resolved]
  - Vomiting [Not Recovered/Not Resolved]
  - Diarrhoea [Not Recovered/Not Resolved]

NARRATIVE: CASE EVENT DATE: 20220301
